FAERS Safety Report 5472382-3 (Version None)
Quarter: 2007Q3

REPORT INFORMATION
  Report Type: 
  Country: None (occurrence: None)
  Receive Date: 20070927
  Receipt Date: 20070918
  Transmission Date: 20080115
  Serious: Yes (Other)
  Sender: FDA-Public Use
  Company Number: 2007EN000233

PATIENT
  Age: 43 Year
  Sex: Male
  Weight: 104.3273 kg

DRUGS (10)
  1. OPANA ER [Suspect]
     Indication: PAIN
     Dosage: 40 MG; BID; PO
     Route: 048
     Dates: start: 20070917
  2. OPANA ER [Suspect]
     Indication: RESTLESS LEGS SYNDROME
     Dosage: 40 MG; BID; PO
     Route: 048
     Dates: start: 20070917
  3. OXYCODONE HCL [Concomitant]
  4. CADUET [Concomitant]
  5. CYMBALTA [Concomitant]
  6. LAMICTAL [Concomitant]
  7. RITALIN [Concomitant]
  8. DYAZIDE [Concomitant]
  9. PROTONIX [Concomitant]
  10. MORPHINE SULFATE [Concomitant]

REACTIONS (6)
  - DRUG WITHDRAWAL SYNDROME [None]
  - INTENTIONAL DRUG MISUSE [None]
  - NAUSEA [None]
  - RETCHING [None]
  - THERAPEUTIC RESPONSE DECREASED [None]
  - WRONG TECHNIQUE IN DRUG USAGE PROCESS [None]
